FAERS Safety Report 14560702 (Version 1)
Quarter: 2018Q1

REPORT INFORMATION
  Report Type: Spontaneous
  Country: US (occurrence: US)
  Receive Date: 20180222
  Receipt Date: 20180222
  Transmission Date: 20180509
  Serious: No
  Sender: FDA-Public Use
  Company Number: US-JNJFOC-20180217119

PATIENT
  Age: 32 Year
  Sex: Male
  Weight: 83.92 kg

DRUGS (1)
  1. INVEGA SUSTENNA [Suspect]
     Active Substance: PALIPERIDONE PALMITATE
     Indication: BIPOLAR DISORDER
     Route: 030
     Dates: start: 201707, end: 201710

REACTIONS (5)
  - Product use in unapproved indication [Unknown]
  - Cognitive disorder [Not Recovered/Not Resolved]
  - Off label use [Unknown]
  - Adverse drug reaction [Not Recovered/Not Resolved]
  - Depression [Not Recovered/Not Resolved]

NARRATIVE: CASE EVENT DATE: 201707
